FAERS Safety Report 8186753-8 (Version None)
Quarter: 2012Q1

REPORT INFORMATION
  Report Type: 
  Country: None (occurrence: None)
  Receive Date: 20120306
  Receipt Date: 20120306
  Transmission Date: 20120608
  Serious: Yes (Life-Threatening, Hospitalization)
  Sender: FDA-Public Use
  Company Number: None

PATIENT
  Age: 34 Year
  Sex: Male
  Weight: 81.646 kg

DRUGS (1)
  1. BUPROPION HCL [Suspect]
     Indication: SMOKING CESSATION THERAPY
     Dosage: I TABLET
     Route: 048
     Dates: start: 20120108, end: 20120203

REACTIONS (7)
  - PARANOIA [None]
  - SUICIDE ATTEMPT [None]
  - INSOMNIA [None]
  - INTENTIONAL SELF-INJURY [None]
  - MOOD SWINGS [None]
  - THINKING ABNORMAL [None]
  - BIPOLAR DISORDER [None]
